FAERS Safety Report 6860292-6 (Version None)
Quarter: 2010Q3

REPORT INFORMATION
  Report Type: 
  Country: None (occurrence: None)
  Receive Date: 20100720
  Receipt Date: 20100707
  Transmission Date: 20110219
  Serious: Yes (Death, Hospitalization)
  Sender: FDA-Public Use
  Company Number: CO-GENENTECH-303854

PATIENT
  Age: 75 Year
  Sex: Female

DRUGS (1)
  1. MABTHERA [Suspect]
     Indication: NON-HODGKIN'S LYMPHOMA
     Dosage: 600 MG, UNK
     Route: 042
     Dates: start: 20100626, end: 20100626

REACTIONS (4)
  - CARDIOPULMONARY FAILURE [None]
  - ELECTROLYTE IMBALANCE [None]
  - PULMONARY SEPSIS [None]
  - PYREXIA [None]
